FAERS Safety Report 25629803 (Version 1)
Quarter: 2025Q3

REPORT INFORMATION
  Report Type: Spontaneous
  Country: EU (occurrence: EU)
  Receive Date: 20250731
  Receipt Date: 20250731
  Transmission Date: 20251020
  Serious: Yes (Hospitalization, Other)
  Sender: CELLTRION
  Company Number: EU-MEDAC-2025-AER-01732

PATIENT

DRUGS (7)
  1. RITUXIMAB [Suspect]
     Active Substance: RITUXIMAB
     Indication: Diffuse large B-cell lymphoma
     Dates: start: 201511
  2. DOXORUBICIN HYDROCHLORIDE [Suspect]
     Active Substance: DOXORUBICIN HYDROCHLORIDE
     Indication: Diffuse large B-cell lymphoma
     Dates: start: 201511
  3. VINCRISTINE [Suspect]
     Active Substance: VINCRISTINE
     Indication: Diffuse large B-cell lymphoma
     Dates: start: 201511
  4. PREDNISONE [Suspect]
     Active Substance: PREDNISONE
     Indication: Diffuse large B-cell lymphoma
     Dates: start: 201511
  5. FILGRASTIM [Concomitant]
     Active Substance: FILGRASTIM
  6. FILGRASTIM [Concomitant]
     Active Substance: FILGRASTIM
  7. PEGFILGRASTIM [Concomitant]
     Active Substance: PEGFILGRASTIM

REACTIONS (5)
  - Myalgia [Recovered/Resolved]
  - Neutropenia [Recovered/Resolved]
  - Leukopenia [Recovered/Resolved]
  - Arthralgia [Recovered/Resolved]
  - Neck pain [Recovered/Resolved]

NARRATIVE: CASE EVENT DATE: 20151130
